FAERS Safety Report 8961612 (Version 1)
Quarter: 2012Q4

REPORT INFORMATION
  Report Type: 
  Country: None (occurrence: US)
  Receive Date: 20121213
  Receipt Date: 20121213
  Transmission Date: 20130627
  Serious: No
  Sender: FDA-Public Use
  Company Number: US-ALLERGAN-1214994US

PATIENT
  Sex: Male

DRUGS (1)
  1. LUMIGAN� 0.01% [Suspect]
     Indication: DRUG USE FOR UNKNOWN INDICATION
     Route: 047

REACTIONS (2)
  - Vision blurred [Unknown]
  - Drug ineffective [Unknown]
